FAERS Safety Report 9853343 (Version 1)
Quarter: 2014Q1

REPORT INFORMATION
  Report Type: Spontaneous
  Country: US (occurrence: US)
  Receive Date: 20140129
  Receipt Date: 20140129
  Transmission Date: 20141002
  Serious: Yes (Hospitalization)
  Sender: FDA-Public Use
  Company Number: US-SA-2014SA009316

PATIENT
  Age: 84 Year
  Sex: Male

DRUGS (2)
  1. RENVELA [Suspect]
     Indication: HYPERPHOSPHATAEMIA
     Route: 065
  2. RENVELA [Suspect]
     Indication: HYPERPHOSPHATAEMIA
     Dosage: PATIENT TOOK 400 MG RENVELA WITH MEALS
     Route: 065

REACTIONS (3)
  - Urinary tract infection [Not Recovered/Not Resolved]
  - Wound [Not Recovered/Not Resolved]
  - Dysphagia [Not Recovered/Not Resolved]
